FAERS Safety Report 11208112 (Version 1)
Quarter: 2015Q2

REPORT INFORMATION
  Report Type: Spontaneous
  Country: US (occurrence: US)
  Receive Date: 20150622
  Receipt Date: 20150622
  Transmission Date: 20150821
  Serious: No
  Sender: FDA-Public Use
  Company Number: US-PFIZER INC-2015202709

PATIENT
  Sex: Female

DRUGS (2)
  1. GABAPENTIN. [Suspect]
     Active Substance: GABAPENTIN
     Indication: PAIN
     Dosage: 600 MG, UNK
     Dates: start: 20150505
  2. GABAPENTIN. [Suspect]
     Active Substance: GABAPENTIN
     Indication: NERVOUS SYSTEM DISORDER

REACTIONS (7)
  - Drug hypersensitivity [Unknown]
  - Paraesthesia [Unknown]
  - Drug dispensing error [Unknown]
  - Product use issue [Unknown]
  - Hyperhidrosis [Unknown]
  - Palpitations [Unknown]
  - Abdominal pain upper [Unknown]
